FAERS Safety Report 6439010-1 (Version None)
Quarter: 2009Q4

REPORT INFORMATION
  Report Type: 
  Country: None (occurrence: None)
  Receive Date: 20091113
  Receipt Date: 20091103
  Transmission Date: 20100525
  Serious: Yes (Death)
  Sender: FDA-Public Use
  Company Number: KR-ROCHE-667539

PATIENT
  Age: 82 Year
  Sex: Female

DRUGS (1)
  1. TAMIFLU [Suspect]
     Indication: H1N1 INFLUENZA
     Route: 065
     Dates: start: 20091026, end: 20091028

REACTIONS (2)
  - DISEASE PROGRESSION [None]
  - PNEUMONIA [None]
